FAERS Safety Report 6908407-5 (Version None)
Quarter: 2010Q3

REPORT INFORMATION
  Report Type: 
  Country: None (occurrence: None)
  Receive Date: 20100805
  Receipt Date: 20100730
  Transmission Date: 20110219
  Serious: Yes (Life-Threatening)
  Sender: FDA-Public Use
  Company Number: FR-MPIJNJ-2010-03441

PATIENT

DRUGS (16)
  1. VELCADE [Suspect]
     Indication: MULTIPLE MYELOMA
     Dosage: 1.3 MG/M2, UNK
     Route: 065
     Dates: start: 20090415, end: 20090817
  2. VELCADE [Suspect]
     Dosage: 1.0 MG/M2, UNK
     Dates: start: 20090827, end: 20100218
  3. CYCLOPHOSPHAMIDE [Concomitant]
     Indication: MULTIPLE MYELOMA
     Dosage: 716 MG, UNK
     Route: 042
     Dates: start: 20090415, end: 20090423
  4. DEXAMETHASONE [Concomitant]
     Indication: MULTIPLE MYELOMA
     Dosage: 40 MG, UNK
     Route: 048
     Dates: start: 20090415, end: 20090423
  5. DEXAMETHASONE [Concomitant]
     Dosage: 40 MG, UNK
     Route: 048
     Dates: start: 20090424, end: 20090603
  6. THALIDOMIDE [Concomitant]
     Indication: MULTIPLE MYELOMA
     Dosage: UNK
     Dates: start: 20081120, end: 20090411
  7. FENTANYL [Concomitant]
     Dosage: UNK
     Route: 061
  8. MORPHINE [Concomitant]
     Dosage: UNK
     Route: 048
     Dates: end: 20090625
  9. MORPHINE [Concomitant]
     Dosage: UNK
     Route: 042
     Dates: end: 20090625
  10. SIMVASTATIN [Concomitant]
     Dosage: UNK
     Route: 048
     Dates: end: 20100226
  11. GRANULOCYTE COLONY STIMULATING FACTOR [Concomitant]
     Dosage: UNK
     Route: 058
     Dates: start: 20090427, end: 20090427
  12. ACYCLOVIR [Concomitant]
     Dosage: UNK
     Route: 048
     Dates: start: 20090427, end: 20090511
  13. INEXIUM                            /01479302/ [Concomitant]
     Dosage: UNK
     Dates: start: 20090427, end: 20100318
  14. VALACYCLOVIR [Concomitant]
     Dosage: UNK
     Route: 048
     Dates: start: 20090427, end: 20100318
  15. EPOGEN [Concomitant]
     Dosage: UNK
     Route: 058
     Dates: start: 20090427, end: 20091210
  16. ANTIBIOTICS [Concomitant]
     Dosage: UNK
     Dates: start: 20090427, end: 20090506

REACTIONS (4)
  - LEUKOPENIA [None]
  - LYMPHOPENIA [None]
  - NEUTROPENIA [None]
  - THROMBOCYTOPENIA [None]
